FAERS Safety Report 7139229-0 (Version None)
Quarter: 2010Q4

REPORT INFORMATION
  Report Type: 
  Country: None (occurrence: None)
  Receive Date: 20101206
  Receipt Date: 20101123
  Transmission Date: 20110411
  Serious: Yes (Other)
  Sender: FDA-Public Use
  Company Number: US-ELI_LILLY_AND_COMPANY-US201010003235

PATIENT
  Age: 64 Year
  Sex: Female

DRUGS (1)
  1. FORTEO [Suspect]
     Dosage: UNK, UNKNOWN
     Route: 065

REACTIONS (6)
  - BACK INJURY [None]
  - BONE PAIN [None]
  - INJECTION SITE PAIN [None]
  - MACULAR HOLE [None]
  - MUSCLE SPASMS [None]
  - NECK INJURY [None]
